FAERS Safety Report 16312222 (Version 4)
Quarter: 2019Q3

REPORT INFORMATION
  Report Type: Spontaneous
  Country: TW (occurrence: TW)
  Receive Date: 20190515
  Receipt Date: 20190719
  Transmission Date: 20191004
  Serious: Yes (Hospitalization)
  Sender: FDA-Public Use
  Company Number: TW-JNJFOC-20190508040

PATIENT
  Age: 19 Year
  Sex: Male
  Weight: 83 kg

DRUGS (1)
  1. MINOXIDIL. [Suspect]
     Active Substance: MINOXIDIL
     Indication: HAIR GROWTH ABNORMAL
     Dosage: ^ONLY USED FOR 3 TIMES AND USED ONCE IN THE NIGHT EVERY DAY
     Route: 061
     Dates: start: 20190430, end: 20190503

REACTIONS (5)
  - Product use in unapproved indication [Unknown]
  - Application site ulcer [Not Recovered/Not Resolved]
  - Application site infection [Recovered/Resolved]
  - Pyrexia [Recovered/Resolved]
  - Off label use [Unknown]

NARRATIVE: CASE EVENT DATE: 20190430
